FAERS Safety Report 18580386 (Version 1)
Quarter: 2020Q4

REPORT INFORMATION
  Report Type: Spontaneous
  Country: US (occurrence: US)
  Receive Date: 20201204
  Receipt Date: 20201204
  Transmission Date: 20210114
  Serious: Yes (Other)
  Sender: FDA-Public Use
  Company Number: US-009507513-2011USA015920

PATIENT
  Age: 639 Month
  Sex: Female
  Weight: 45.4 kg

DRUGS (10)
  1. NEXIUM [Suspect]
     Active Substance: ESOMEPRAZOLE MAGNESIUM
     Indication: GASTROOESOPHAGEAL REFLUX DISEASE
     Dosage: 40 MILLIGRAM, QD
     Route: 048
     Dates: end: 2013
  2. OMEPRAZOLE. [Suspect]
     Active Substance: OMEPRAZOLE
     Indication: GASTROOESOPHAGEAL REFLUX DISEASE
     Dosage: 40 MILLIGRAM, QD
     Route: 048
     Dates: start: 2007
  3. OMEPRAZOLE. [Suspect]
     Active Substance: OMEPRAZOLE
     Dosage: 20 MILLIGRAM, QD
     Route: 048
     Dates: start: 2013
  4. FOSAMAX [Concomitant]
     Active Substance: ALENDRONATE SODIUM
  5. SYMBICORT [Suspect]
     Active Substance: BUDESONIDE\FORMOTEROL FUMARATE DIHYDRATE
     Dosage: 160/4.5 MCG, ONE PUFF ON OCCASION AS NEEDED
     Route: 055
  6. PRINIVIL [Suspect]
     Active Substance: LISINOPRIL
     Indication: BLOOD PRESSURE ABNORMAL
     Dosage: 20 MILLIGRAM, QD
     Route: 048
     Dates: start: 2007
  7. ZANAFLEX [Concomitant]
     Active Substance: TIZANIDINE HYDROCHLORIDE
     Indication: MUSCLE SPASMS
     Dosage: 4 MILLIGRAM, QD
  8. PROTONIX [Concomitant]
     Active Substance: PANTOPRAZOLE SODIUM
     Dosage: UNK
     Dates: start: 2008
  9. TAGAMET [Concomitant]
     Active Substance: CIMETIDINE
     Dosage: UNK
     Dates: start: 2013
  10. VALIUM [Concomitant]
     Active Substance: DIAZEPAM

REACTIONS (20)
  - Palpitations [Unknown]
  - Dyspepsia [Unknown]
  - Product dose omission issue [Unknown]
  - Food intolerance [Unknown]
  - Diverticulitis [Unknown]
  - Asthma [Unknown]
  - Abdominal distension [Unknown]
  - Bronchitis [Unknown]
  - Ulcer [Unknown]
  - Hiatus hernia [Unknown]
  - Panic attack [Unknown]
  - Anxiety [Unknown]
  - Adverse event [Unknown]
  - Osteoarthritis [Unknown]
  - Peptic ulcer [Unknown]
  - Blood pressure increased [Unknown]
  - Body height decreased [Unknown]
  - Limb crushing injury [Unknown]
  - Influenza like illness [Unknown]
  - Intentional product misuse [Unknown]

NARRATIVE: CASE EVENT DATE: 200612
